FAERS Safety Report 8958414 (Version 1)
Quarter: 2012Q4

REPORT INFORMATION
  Report Type: Spontaneous
  Country: US (occurrence: None)
  Receive Date: 20121205
  Receipt Date: 20121205
  Transmission Date: 20130627
  Serious: No
  Sender: FDA-Public Use
  Company Number: None

PATIENT
  Sex: Female

DRUGS (1)
  1. REMICADE [Suspect]
     Indication: RA
     Dosage: 300mg q8-9 weeks IV
     Route: 042
     Dates: start: 2006, end: 201210

REACTIONS (1)
  - Psoriasis [None]
